FAERS Safety Report 5345819-8 (Version None)
Quarter: 2007Q2

REPORT INFORMATION
  Report Type: 
  Country: None (occurrence: None)
  Receive Date: 20070426
  Receipt Date: 20061114
  Transmission Date: 20071010
  Serious: Yes (Hospitalization, Other)
  Sender: FDA-Public Use
  Company Number: US-JNJFOC-20060901755

PATIENT
  Age: 26 Year
  Sex: Female

DRUGS (1)
  1. ULTRAM [Suspect]
     Indication: HEADACHE

REACTIONS (1)
  - GRAND MAL CONVULSION [None]
